FAERS Safety Report 20772740 (Version 1)
Quarter: 2022Q2

REPORT INFORMATION
  Report Type: Spontaneous
  Country: DE (occurrence: DE)
  Receive Date: 20220502
  Receipt Date: 20220502
  Transmission Date: 20220721
  Serious: Yes (Death)
  Sender: FDA-Public Use
  Company Number: DE-JNJFOC-20200213370

PATIENT
  Sex: Male

DRUGS (3)
  1. ZYTIGA [Suspect]
     Active Substance: ABIRATERONE ACETATE
     Indication: Prostate cancer metastatic
     Route: 048
  2. ZYTIGA [Suspect]
     Active Substance: ABIRATERONE ACETATE
     Indication: Metastases to liver
  3. DIETARY SUPPLEMENT\HERBALS\MILK THISTLE [Interacting]
     Active Substance: DIETARY SUPPLEMENT\HERBALS\MILK THISTLE
     Indication: Hepatic enzyme increased
     Route: 065

REACTIONS (4)
  - Death [Fatal]
  - Hepatic enzyme increased [Unknown]
  - Drug interaction [Unknown]
  - Prostatic specific antigen increased [Not Recovered/Not Resolved]
